FAERS Safety Report 4950077-X (Version None)
Quarter: 2006Q1

REPORT INFORMATION
  Report Type: 
  Country: None (occurrence: None)
  Receive Date: 20060322
  Receipt Date: 20060307
  Transmission Date: 20060701
  Serious: Yes (Other)
  Sender: FDA-Public Use
  Company Number: 2006GB00405

PATIENT
  Age: 40 Year
  Sex: Male

DRUGS (3)
  1. XYLOCAINE [Suspect]
     Indication: ENDOSCOPY
     Route: 049
     Dates: start: 20060109
  2. BECOTIDE INHALER [Concomitant]
     Indication: ASTHMA
  3. VENTOLIN [Concomitant]
     Indication: ASTHMA

REACTIONS (4)
  - DIARRHOEA [None]
  - FATIGUE [None]
  - HEADACHE [None]
  - RENAL PAIN [None]
